FAERS Safety Report 16417075 (Version 1)
Quarter: 2019Q2

REPORT INFORMATION
  Report Type: Spontaneous
  Country: US (occurrence: US)
  Receive Date: 20190611
  Receipt Date: 20190611
  Transmission Date: 20190711
  Serious: Yes (Hospitalization)
  Sender: FDA-Public Use
  Company Number: US-ASTRAZENECA-2019SE84247

PATIENT
  Sex: Male
  Weight: 62.6 kg

DRUGS (3)
  1. MONTELUKAST [Concomitant]
     Active Substance: MONTELUKAST SODIUM
     Dosage: AT NIGHT
     Route: 048
  2. SYMBICORT [Suspect]
     Active Substance: BUDESONIDE\FORMOTEROL FUMARATE DIHYDRATE
     Indication: CHRONIC OBSTRUCTIVE PULMONARY DISEASE
     Dosage: 80/4.5 MCG, 2 PUFFS TWO TIMES A DAY
     Route: 055
  3. SPIRIVA [Concomitant]
     Active Substance: TIOTROPIUM BROMIDE MONOHYDRATE
     Indication: CHEST DISCOMFORT

REACTIONS (9)
  - Glaucoma [Unknown]
  - Gait disturbance [Unknown]
  - Vision blurred [Unknown]
  - Hernia [Unknown]
  - Pulmonary function test abnormal [Unknown]
  - Wrong technique in device usage process [Unknown]
  - Nasal polyps [Unknown]
  - Off label use [Unknown]
  - Device issue [Unknown]
